FAERS Safety Report 12161879 (Version 1)
Quarter: 2016Q1

REPORT INFORMATION
  Report Type: Spontaneous
  Country: US (occurrence: US)
  Receive Date: 20160309
  Receipt Date: 20160309
  Transmission Date: 20160526
  Serious: Yes (Hospitalization, Other)
  Sender: FDA-Public Use
  Company Number: US-BRISTOL-MYERS SQUIBB COMPANY-BMS-2016-014927

PATIENT
  Sex: Female
  Weight: 81.63 kg

DRUGS (1)
  1. SPRYCEL [Suspect]
     Active Substance: DASATINIB
     Indication: CHRONIC MYELOID LEUKAEMIA
     Dosage: 100 MG, QD
     Route: 065
     Dates: end: 20151217

REACTIONS (5)
  - Pleural effusion [Unknown]
  - Aspiration pleural cavity [Unknown]
  - Malaise [Unknown]
  - Pleurisy [Recovering/Resolving]
  - Pneumonia [Recovering/Resolving]
